FAERS Safety Report 13061258 (Version 5)
Quarter: 2018Q1

REPORT INFORMATION
  Report Type: Report from Study
  Country: None (occurrence: CA)
  Receive Date: 20161226
  Receipt Date: 20180328
  Transmission Date: 20180508
  Serious: Yes (Hospitalization, Other)
  Sender: FDA-Public Use
  Company Number: CA-ABBVIE-16K-028-1820236-00

PATIENT
  Age: 26 Year
  Sex: Male

DRUGS (2)
  1. HUMIRA [Suspect]
     Active Substance: ADALIMUMAB
     Route: 058
     Dates: start: 2017
  2. HUMIRA [Suspect]
     Active Substance: ADALIMUMAB
     Indication: CROHN^S DISEASE
     Route: 058
     Dates: start: 20140805

REACTIONS (11)
  - Ligament rupture [Unknown]
  - Fistula [Recovered/Resolved]
  - Abdominal pain [Recovered/Resolved]
  - Small intestinal obstruction [Not Recovered/Not Resolved]
  - Joint dislocation [Unknown]
  - Constipation [Recovered/Resolved]
  - Joint dislocation [Unknown]
  - Nausea [Recovered/Resolved]
  - Weight decreased [Recovered/Resolved]
  - Injection site pain [Not Recovered/Not Resolved]
  - Flatulence [Recovered/Resolved]

NARRATIVE: CASE EVENT DATE: 201504
